FAERS Safety Report 6058153-8 (Version None)
Quarter: 2009Q1

REPORT INFORMATION
  Report Type: 
  Country: None (occurrence: None)
  Receive Date: 20090127
  Receipt Date: 20090115
  Transmission Date: 20090719
  Serious: Yes (Hospitalization)
  Sender: FDA-Public Use
  Company Number: 2009-00212

PATIENT
  Sex: Female

DRUGS (2)
  1. VELCADE [Suspect]
     Indication: MULTIPLE MYELOMA
     Dosage: 1.3 MG/M2, INTRAVENOUS
     Route: 042
     Dates: start: 20081216, end: 20081223
  2. DECADRON [Concomitant]

REACTIONS (3)
  - CAPILLARY LEAK SYNDROME [None]
  - LUNG DISORDER [None]
  - PLEURAL EFFUSION [None]
